FAERS Safety Report 16070514 (Version 1)
Quarter: 2019Q1

REPORT INFORMATION
  Report Type: Spontaneous
  Country: TN (occurrence: TN)
  Receive Date: 20190314
  Receipt Date: 20190314
  Transmission Date: 20190418
  Serious: Yes (Hospitalization)
  Sender: FDA-Public Use
  Company Number: TN-JNJFOC-20190306819

PATIENT
  Age: 19 Year
  Sex: Female
  Weight: 38 kg

DRUGS (4)
  1. LOPERAMIDE [Suspect]
     Active Substance: LOPERAMIDE
     Route: 065
  2. LOPERAMIDE [Suspect]
     Active Substance: LOPERAMIDE
     Indication: DIARRHOEA
     Route: 065
  3. AMOXICILLIN. [Suspect]
     Active Substance: AMOXICILLIN
     Indication: RESPIRATORY TRACT INFECTION
     Route: 065
  4. CEFIXIME. [Suspect]
     Active Substance: CEFIXIME
     Indication: RESPIRATORY TRACT INFECTION
     Route: 065

REACTIONS (1)
  - Pseudomembranous colitis [Recovering/Resolving]
